FAERS Safety Report 24067450 (Version 4)
Quarter: 2024Q3

REPORT INFORMATION
  Report Type: Spontaneous
  Country: CN (occurrence: CN)
  Receive Date: 20240709
  Receipt Date: 20240819
  Transmission Date: 20241017
  Serious: Yes (Other)
  Sender: ABBVIE
  Company Number: CN-TAKEDA-2024TUS068418

PATIENT
  Age: 29 Year
  Sex: Female

DRUGS (1)
  1. ENANTONE LP [Suspect]
     Active Substance: LEUPROLIDE ACETATE
     Indication: Breast cancer
     Dosage: 11.25 MG
     Route: 065
     Dates: start: 20240628

REACTIONS (2)
  - Hepatitis B [Unknown]
  - Device issue [Unknown]

NARRATIVE: CASE EVENT DATE: 20240101
